FAERS Safety Report 5615766-2 (Version None)
Quarter: 2008Q1

REPORT INFORMATION
  Report Type: 
  Country: None (occurrence: None)
  Receive Date: 20080206
  Receipt Date: 20080201
  Transmission Date: 20080703
  Serious: Yes (Death, Hospitalization)
  Sender: FDA-Public Use
  Company Number: US-BRISTOL-MYERS SQUIBB COMPANY-14035810

PATIENT
  Sex: Male
  Weight: 94 kg

DRUGS (3)
  1. DASATINIB [Suspect]
     Indication: PANCREATIC CARCINOMA
     Route: 048
     Dates: start: 20071220
  2. ERBITUX [Suspect]
     Indication: PANCREATIC CARCINOMA
     Dates: start: 20071220
  3. GEMCITABINE [Suspect]
     Indication: PANCREATIC CARCINOMA
     Dates: start: 20071220

REACTIONS (4)
  - COUGH [None]
  - DYSPNOEA [None]
  - HYPERBILIRUBINAEMIA [None]
  - PNEUMONITIS [None]
